FAERS Safety Report 5708019-5 (Version None)
Quarter: 2008Q1

REPORT INFORMATION
  Report Type: 
  Country: None (occurrence: None)
  Receive Date: 20080324
  Receipt Date: 20080324
  Transmission Date: 20080703
  Serious: No
  Sender: FDA-Public Use
  Company Number: None

PATIENT
  Age: 45 Year
  Sex: Male
  Weight: 79 kg

DRUGS (2)
  1. HEPARIN [Suspect]
     Indication: EMBOLISM
     Dosage: ONE TIME IV 3/21 2300 - 3/28 2200
     Route: 042
     Dates: start: 20080321, end: 20080328
  2. HEPARIN [Suspect]

REACTIONS (2)
  - ANAEMIA [None]
  - PYREXIA [None]
